FAERS Safety Report 9241787 (Version 2)
Quarter: 2013Q4

REPORT INFORMATION
  Report Type: Spontaneous
  Country: AU (occurrence: AU)
  Receive Date: 20130419
  Receipt Date: 20131002
  Transmission Date: 20140711
  Serious: Yes (Other)
  Sender: FDA-Public Use
  Company Number: AU-009507513-1304AUS008695

PATIENT
  Age: 32 Year
  Sex: Female

DRUGS (6)
  1. SAPHRIS [Suspect]
     Indication: PSYCHOTIC DISORDER
     Dosage: UNK, QD
     Route: 048
     Dates: start: 20111206, end: 20120814
  2. OLANZAPINE [Suspect]
     Indication: PSYCHOTIC DISORDER
     Dosage: 10 MG DAILY
     Route: 048
     Dates: start: 20120515
  3. RISPERIDONE [Suspect]
     Indication: PSYCHOTIC DISORDER
     Dosage: 2 MG DAILY
     Route: 048
     Dates: end: 20111206
  4. DIAZEPAM [Concomitant]
     Indication: SEDATION
     Dosage: 10 MG
     Route: 048
  5. DIAZEPAM [Concomitant]
     Indication: ANXIETY
  6. VITAMINS (UNSPECIFIED) [Concomitant]
     Indication: ROUTINE HEALTH MAINTENANCE
     Dosage: 1 DF, UNK
     Route: 048
     Dates: start: 201111

REACTIONS (3)
  - Caesarean section [Recovered/Resolved]
  - Beta haemolytic streptococcal infection [Unknown]
  - Maternal exposure during pregnancy [Unknown]
